FAERS Safety Report 18994004 (Version 1)
Quarter: 2021Q1

REPORT INFORMATION
  Report Type: Spontaneous
  Country: PL (occurrence: PL)
  Receive Date: 20210311
  Receipt Date: 20210311
  Transmission Date: 20210420
  Serious: Yes (Other)
  Sender: FDA-Public Use
  Company Number: PL-SUN PHARMACEUTICAL INDUSTRIES LTD-2021RR-285085

PATIENT
  Age: 58 Year
  Sex: Male

DRUGS (5)
  1. NINTEDANIB [Suspect]
     Active Substance: NINTEDANIB
     Indication: LUNG CARCINOMA CELL TYPE UNSPECIFIED STAGE IV
     Dosage: 15 CYCLES
     Route: 065
     Dates: start: 201812, end: 202001
  2. CISPLATIN. [Suspect]
     Active Substance: CISPLATIN
     Indication: LUNG CARCINOMA CELL TYPE UNSPECIFIED STAGE IV
     Dosage: 6 CYCLES
     Route: 065
     Dates: start: 201612, end: 201704
  3. PEMETREXED. [Suspect]
     Active Substance: PEMETREXED
     Indication: LUNG CARCINOMA CELL TYPE UNSPECIFIED STAGE IV
     Dosage: 6 CYCLES
     Route: 065
     Dates: start: 201612, end: 201704
  4. DOCETAXEL. [Suspect]
     Active Substance: DOCETAXEL
     Indication: LUNG CARCINOMA CELL TYPE UNSPECIFIED STAGE IV
     Dosage: 15 CYCLES
     Route: 065
     Dates: start: 201812, end: 202001
  5. GEMCITABINE. [Suspect]
     Active Substance: GEMCITABINE
     Indication: LUNG CARCINOMA CELL TYPE UNSPECIFIED STAGE IV
     Dosage: 1000 MILLIGRAM/SQ. METER, 3 DOSES
     Route: 065
     Dates: start: 202002, end: 202003

REACTIONS (12)
  - Decreased appetite [Unknown]
  - Malaise [Unknown]
  - Transaminases increased [Unknown]
  - Nephropathy toxic [Unknown]
  - Upper respiratory tract infection [Unknown]
  - Pulmonary embolism [Unknown]
  - Asthenia [Unknown]
  - Abdominal pain [Unknown]
  - Thrombocytopenia [Unknown]
  - Disease progression [Unknown]
  - Neutropenia [Unknown]
  - Nausea [Unknown]
